FAERS Safety Report 16066651 (Version 1)
Quarter: 2019Q1

REPORT INFORMATION
  Report Type: Spontaneous
  Country: GB (occurrence: GB)
  Receive Date: 20190313
  Receipt Date: 20190313
  Transmission Date: 20190418
  Serious: Yes (Other)
  Sender: FDA-Public Use
  Company Number: GB-BAYER-2019-045845

PATIENT
  Age: 41 Year
  Sex: Female
  Weight: 63 kg

DRUGS (1)
  1. YASMIN [Suspect]
     Active Substance: DROSPIRENONE\ETHINYL ESTRADIOL
     Route: 048

REACTIONS (3)
  - Hypertension [Recovering/Resolving]
  - Migraine [Recovered/Resolved]
  - Vulvovaginal candidiasis [Recovering/Resolving]

NARRATIVE: CASE EVENT DATE: 201809
